FAERS Safety Report 11988311 (Version 2)
Quarter: 2016Q2

REPORT INFORMATION
  Report Type: Spontaneous
  Country: US (occurrence: US)
  Receive Date: 20160202
  Receipt Date: 20160425
  Transmission Date: 20160815
  Serious: Yes (Hospitalization, Other)
  Sender: FDA-Public Use
  Company Number: US-ELI_LILLY_AND_COMPANY-US201601010879

PATIENT
  Age: 67 Year
  Sex: Male
  Weight: 95 kg

DRUGS (9)
  1. GEMFIBROZIL. [Concomitant]
     Active Substance: GEMFIBROZIL
     Indication: PRODUCT USED FOR UNKNOWN INDICATION
     Dosage: UNK
     Route: 065
     Dates: start: 201108, end: 201503
  2. SERTRALINE [Concomitant]
     Active Substance: SERTRALINE HYDROCHLORIDE
     Indication: PRODUCT USED FOR UNKNOWN INDICATION
     Dosage: UNK
     Route: 065
     Dates: start: 201108
  3. CLONAZEPAM. [Concomitant]
     Active Substance: CLONAZEPAM
     Indication: INSOMNIA
     Dosage: UNK
     Route: 065
     Dates: start: 201108
  4. AXIRON [Suspect]
     Active Substance: TESTOSTERONE
     Indication: BLOOD TESTOSTERONE DECREASED
     Dosage: UNK UNK, QD
     Route: 065
     Dates: start: 201108, end: 201109
  5. ATENOLOL. [Concomitant]
     Active Substance: ATENOLOL
     Indication: ARRHYTHMIA
     Dosage: UNK
     Route: 065
     Dates: start: 201109, end: 201205
  6. LEVOTHYROXIN [Concomitant]
     Active Substance: LEVOTHYROXINE
     Indication: PRODUCT USED FOR UNKNOWN INDICATION
     Dosage: UNK
     Route: 065
     Dates: start: 201108
  7. ZOLPIDEM [Concomitant]
     Active Substance: ZOLPIDEM\ZOLPIDEM TARTRATE
     Indication: INSOMNIA
     Dosage: UNK
     Route: 065
     Dates: start: 201108, end: 201412
  8. VITAMIN D [Concomitant]
     Active Substance: CHOLECALCIFEROL
     Indication: SUPPLEMENTATION THERAPY
     Dosage: UNK
     Route: 065
  9. LAMOTRIGINE. [Concomitant]
     Active Substance: LAMOTRIGINE
     Indication: PRODUCT USED FOR UNKNOWN INDICATION
     Dosage: UNK
     Route: 065
     Dates: start: 201108, end: 201503

REACTIONS (18)
  - Coronary artery occlusion [Unknown]
  - Chest pain [Unknown]
  - Acute myocardial infarction [Not Recovered/Not Resolved]
  - Pleural effusion [Unknown]
  - Sinus bradycardia [Unknown]
  - Diaphragmatic paralysis [Unknown]
  - Ischaemic cardiomyopathy [Unknown]
  - Angina unstable [Unknown]
  - Cardiomegaly [Unknown]
  - Palpitations [Unknown]
  - Left ventricular end-diastolic pressure increased [Unknown]
  - Mitral valve incompetence [Unknown]
  - Defect conduction intraventricular [Unknown]
  - Chronic obstructive pulmonary disease [Unknown]
  - Atelectasis [Unknown]
  - Dyspnoea [Unknown]
  - Coronary artery disease [Unknown]
  - Chest pain [Not Recovered/Not Resolved]

NARRATIVE: CASE EVENT DATE: 20111106
